FAERS Safety Report 20183801 (Version 2)
Quarter: 2021Q4

REPORT INFORMATION
  Report Type: Spontaneous
  Country: CH (occurrence: CH)
  Receive Date: 20211214
  Receipt Date: 20211220
  Transmission Date: 20220303
  Serious: Yes (Other)
  Sender: FDA-Public Use
  Company Number: CH-BAUSCH-BL-2021-041195

PATIENT
  Sex: Male

DRUGS (4)
  1. ELIDEL [Suspect]
     Active Substance: PIMECROLIMUS
     Indication: Product used for unknown indication
     Dosage: 3 LOCAL APPLICATIONS ON EYELIDS
     Route: 065
     Dates: start: 20211126, end: 20211127
  2. ELIDEL [Suspect]
     Active Substance: PIMECROLIMUS
     Route: 065
  3. NIZORAL [Concomitant]
     Active Substance: KETOCONAZOLE
     Indication: Product used for unknown indication
  4. MICONAZOLE NITRATE [Concomitant]
     Active Substance: MICONAZOLE NITRATE
     Indication: Product used for unknown indication

REACTIONS (3)
  - Ulcerative keratitis [Recovering/Resolving]
  - Condition aggravated [Recovering/Resolving]
  - Herpes virus infection [Recovering/Resolving]
